FAERS Safety Report 26180476 (Version 1)
Quarter: 2025Q4

REPORT INFORMATION
  Report Type: Report from Study
  Country: EU (occurrence: EU)
  Receive Date: 20251219
  Receipt Date: 20251219
  Transmission Date: 20260118
  Serious: Yes (Hospitalization)
  Sender: DUCHESNAY
  Company Number: EU-EXELTIS PHARMACEUTICAL HOLDING, S.L.-2512FR10350

PATIENT

DRUGS (2)
  1. DOXYLAMINE SUCCINATE\PYRIDOXINE HYDROCHLORIDE [Suspect]
     Active Substance: DOXYLAMINE SUCCINATE\PYRIDOXINE HYDROCHLORIDE
     Indication: Morning sickness
     Dosage: TOOK THE MAXIMUM DOSAGES(...)NORMAL
     Route: 048
  2. DOXYLAMINE SUCCINATE\PYRIDOXINE HYDROCHLORIDE [Suspect]
     Active Substance: DOXYLAMINE SUCCINATE\PYRIDOXINE HYDROCHLORIDE
     Indication: Morning sickness
     Dosage: TOOK THE MAXIMUM DOSAGES(...)NORMAL
     Route: 048

REACTIONS (2)
  - Dehydration [Unknown]
  - Drug ineffective [Unknown]
